FAERS Safety Report 15069694 (Version 1)
Quarter: 2018Q2

REPORT INFORMATION
  Report Type: Spontaneous
  Country: US (occurrence: US)
  Receive Date: 20180626
  Receipt Date: 20180626
  Transmission Date: 20180711
  Serious: No
  Sender: FDA-Public Use
  Company Number: US-AMGEN-USASP2013057059

PATIENT
  Age: 51 Year
  Sex: Female

DRUGS (3)
  1. TAXOTERE [Concomitant]
     Active Substance: DOCETAXEL
     Dosage: UNK
  2. NEULASTA [Suspect]
     Active Substance: PEGFILGRASTIM
     Indication: PRODUCT USED FOR UNKNOWN INDICATION
     Dosage: UNK
     Route: 065
  3. CYTOXAN [Concomitant]
     Active Substance: CYCLOPHOSPHAMIDE
     Dosage: UNK

REACTIONS (8)
  - Arthralgia [Unknown]
  - Back pain [Unknown]
  - Pubic pain [Unknown]
  - Connective tissue disorder [Unknown]
  - White blood cell count increased [Unknown]
  - Pelvic pain [Unknown]
  - Bone pain [Unknown]
  - Pain [Unknown]
